FAERS Safety Report 6872717-0 (Version None)
Quarter: 2010Q3

REPORT INFORMATION
  Report Type: 
  Country: None (occurrence: None)
  Receive Date: 20100723
  Receipt Date: 20081027
  Transmission Date: 20110219
  Serious: No
  Sender: FDA-Public Use
  Company Number: US-PFIZER INC-2008090676

PATIENT
  Sex: Female
  Weight: 68.04 kg

DRUGS (1)
  1. CHANTIX [Suspect]
     Indication: SMOKING CESSATION THERAPY
     Route: 048
     Dates: start: 20081001, end: 20081001

REACTIONS (4)
  - ABNORMAL DREAMS [None]
  - DIZZINESS [None]
  - IRRITABILITY [None]
  - NAUSEA [None]
